FAERS Safety Report 8811191 (Version 1)
Quarter: 2012Q4

REPORT INFORMATION
  Report Type: Spontaneous
  Country: US (occurrence: None)
  Receive Date: 20120925
  Receipt Date: 20120925
  Transmission Date: 20130627
  Serious: Yes (Other)
  Sender: FDA-Public Use
  Company Number: None

PATIENT
  Age: 18 Year
  Sex: Male
  Weight: 74.84 kg

DRUGS (1)
  1. SOLODYN [Suspect]
     Indication: ACNE

REACTIONS (11)
  - Fatigue [None]
  - Stomatitis [None]
  - Arthralgia [None]
  - Joint swelling [None]
  - Urticaria [None]
  - Pruritus [None]
  - Pyrexia [None]
  - Lip swelling [None]
  - Night sweats [None]
  - Gastrooesophageal reflux disease [None]
  - Benign renal neoplasm [None]
